FAERS Safety Report 5094888-1 (Version None)
Quarter: 2006Q3

REPORT INFORMATION
  Report Type: 
  Country: None (occurrence: None)
  Receive Date: 20060901
  Receipt Date: 20060821
  Transmission Date: 20061208
  Serious: Yes (Disabling)
  Sender: FDA-Public Use
  Company Number: 2006GB01453

PATIENT
  Age: 60 Year
  Sex: Male
  Weight: 78 kg

DRUGS (1)
  1. OMEPRAZOLE [Suspect]
     Route: 048
     Dates: start: 20060605, end: 20060607

REACTIONS (5)
  - ANOREXIA [None]
  - CHROMATURIA [None]
  - FATIGUE [None]
  - OCULAR ICTERUS [None]
  - PAIN [None]
